FAERS Safety Report 6627654-3 (Version None)
Quarter: 2010Q1

REPORT INFORMATION
  Report Type: 
  Country: None (occurrence: None)
  Receive Date: 20100311
  Receipt Date: 20100302
  Transmission Date: 20100710
  Serious: Yes (Hospitalization)
  Sender: FDA-Public Use
  Company Number: US-ASTRAZENECA-2009UW01175

PATIENT
  Age: 47 Year
  Sex: Male
  Weight: 108.9 kg

DRUGS (5)
  1. NEXIUM [Suspect]
     Route: 048
     Dates: start: 20000101
  2. FLEXERIL [Concomitant]
  3. VYTORIN [Concomitant]
  4. CIPRO [Concomitant]
  5. MOBIC [Concomitant]

REACTIONS (4)
  - BLOOD URINE PRESENT [None]
  - NEPHRECTOMY [None]
  - RENAL DISORDER [None]
  - STENT PLACEMENT [None]
